FAERS Safety Report 9353722 (Version 1)
Quarter: 2013Q2

REPORT INFORMATION
  Report Type: Spontaneous
  Country: AU (occurrence: None)
  Receive Date: 20130612
  Receipt Date: 20130612
  Transmission Date: 20140414
  Serious: Yes (Death)
  Sender: FDA-Public Use
  Company Number: 1749402

PATIENT
  Age: 74 Year
  Sex: Male

DRUGS (3)
  1. CALCIUM FOLINATE [Suspect]
     Indication: COLORECTAL CANCER METASTATIC
     Dosage: CYCLICAL DOSAGE.
  2. (OXALIPLATIN) [Suspect]
     Indication: COLORECTAL CANCER METASTATIC
     Dosage: CYCLICAL DOSAGE.
  3. FLUOROURACIL [Suspect]
     Indication: COLORECTAL CANCER METASTATIC
     Dosage: CYCLICAL DOSAGE.

REACTIONS (6)
  - Respiratory failure [None]
  - Pulmonary alveolar haemorrhage [None]
  - Interstitial lung disease [None]
  - Pulmonary toxicity [None]
  - Malignant neoplasm progression [None]
  - Metastases to liver [None]
